FAERS Safety Report 13377433 (Version 1)
Quarter: 2017Q1

REPORT INFORMATION
  Report Type: Spontaneous
  Country: US (occurrence: US)
  Receive Date: 20170328
  Receipt Date: 20170328
  Transmission Date: 20170429
  Serious: Yes (Hospitalization)
  Sender: FDA-Public Use
  Company Number: None

PATIENT
  Age: 88 Year
  Sex: Male
  Weight: 86.18 kg

DRUGS (5)
  1. XARELTO [Concomitant]
     Active Substance: RIVAROXABAN
  2. ONE A DAY + COD OIL [Concomitant]
  3. VERAPAMIL [Concomitant]
     Active Substance: VERAPAMIL HYDROCHLORIDE
  4. GAVILYTE G [Suspect]
     Active Substance: POLYETHYLENE GLYCOL 3350\POTASSIUM CHLORIDE\SODIUM BICARBONATE\SODIUM CHLORIDE\SODIUM SULFATE ANHYDROUS
     Indication: COLONOSCOPY
     Dosage: 1 GALLON 8 OZ. EA. 10 MIN  5 HRS BEFORE EXAM MOUTH
     Route: 048
     Dates: start: 20161108, end: 20161108
  5. NIACIN. [Concomitant]
     Active Substance: NIACIN

REACTIONS (3)
  - Nausea [None]
  - Retching [None]
  - Decreased appetite [None]

NARRATIVE: CASE EVENT DATE: 20161108
